FAERS Safety Report 4645335-2 (Version None)
Quarter: 2005Q2

REPORT INFORMATION
  Report Type: 
  Country: None (occurrence: None)
  Receive Date: 20050422
  Receipt Date: 20050411
  Transmission Date: 20051028
  Serious: Yes (Other)
  Sender: FDA-Public Use
  Company Number: 2005058458

PATIENT
  Age: 51 Year
  Sex: Female

DRUGS (4)
  1. BEXTRA [Suspect]
     Indication: FIBROMYALGIA
     Dosage: (40 MG), ORAL
     Route: 048
     Dates: start: 20050201, end: 20050408
  2. ALL OTHER THERAPEUTIC PRODUCTS (ALL OTHER THERAPEUTIC PRODUCTS) [Suspect]
     Indication: ILL-DEFINED DISORDER
     Dosage: INTRAMUSCULAR
     Route: 030
  3. DIAZEPAM [Concomitant]
  4. ALPRAZOLAM [Concomitant]

REACTIONS (1)
  - ERYTHEMA [None]
